FAERS Safety Report 8830036 (Version 6)
Quarter: 2013Q2

REPORT INFORMATION
  Report Type: Report from Study
  Country: US (occurrence: US)
  Receive Date: 20121008
  Receipt Date: 20130503
  Transmission Date: 20140414
  Serious: Yes (Disabling, Other)
  Sender: FDA-Public Use
  Company Number: PHEH2012US019488

PATIENT
  Age: 53 Year
  Sex: Female
  Weight: 66.21 kg

DRUGS (18)
  1. GILENYA [Suspect]
     Indication: RELAPSING-REMITTING MULTIPLE SCLEROSIS
     Dosage: 0.5 MG, QD
     Route: 048
     Dates: start: 20110120
  2. AMANTADINE HYDROCHLORIDE [Concomitant]
     Dosage: 100 MG, BID
     Route: 048
     Dates: start: 20120820
  3. AMITRIPTYLINE HYDROCHLORIDE [Concomitant]
     Dosage: 25 MG, AT BEDTIME
     Route: 048
     Dates: start: 20111128
  4. AMPYRA [Concomitant]
     Dosage: 10 MG, BID
     Route: 048
     Dates: start: 20100830
  5. BUPROPION HYDROCHLORIDE [Concomitant]
     Dosage: 2 DF, DAILY
     Route: 048
     Dates: start: 20120521
  6. CYCLOBENZAPRINE HYDROCHLORIDE [Concomitant]
     Dosage: 10 MG, BID
     Dates: start: 20110824
  7. CYMBALTA [Concomitant]
     Dosage: 3 DF, DAILY
     Route: 048
     Dates: start: 20100414
  8. ATROPINE W/DIPHENOXYLATE [Concomitant]
     Indication: DIARRHOEA
     Dosage: 1 DF, EVERY 4 TO 6 HOURS
     Route: 048
     Dates: start: 20100526
  9. LORAZEPAM [Concomitant]
     Dosage: 1 MG, Q12H
     Route: 048
     Dates: start: 20120820
  10. MODAFINIL [Concomitant]
     Dosage: 200 MG, BID
     Route: 048
     Dates: start: 20110513
  11. PROVENTIL HFA [Concomitant]
     Dosage: UNK 1-2 PUFFS EVERY 4 TO 6 HOURS AS NEEDED
     Dates: start: 20110627
  12. VITAMIN B COMPLEX [Concomitant]
     Dosage: 1 DF, DAILY
     Route: 048
     Dates: start: 20111128
  13. VITAMIN D3 [Concomitant]
     Dosage: 5000 U, UNK
     Route: 048
     Dates: start: 20111128
  14. BACLOFEN [Concomitant]
     Dosage: UNK UKN, UNK
  15. CLONAZEPAM [Concomitant]
     Dosage: UNK UKN, UNK
  16. GABAPENTIN [Concomitant]
     Dosage: 300 MG, BID
     Route: 048
     Dates: start: 20110726
  17. OXYCONTIN [Concomitant]
     Dosage: 30 MG, UNK
  18. PROVIGIL [Concomitant]
     Dosage: UNK UKN, UNK

REACTIONS (16)
  - Lumbar vertebral fracture [Unknown]
  - Fall [Not Recovered/Not Resolved]
  - Arthralgia [Unknown]
  - Back pain [Unknown]
  - Multiple sclerosis [Not Recovered/Not Resolved]
  - Gait disturbance [Not Recovered/Not Resolved]
  - Balance disorder [Unknown]
  - Muscle spasms [Not Recovered/Not Resolved]
  - Peroneal nerve palsy [Unknown]
  - Disturbance in attention [Unknown]
  - Chest discomfort [Recovered/Resolved]
  - Fatigue [Not Recovered/Not Resolved]
  - Faecal incontinence [Not Recovered/Not Resolved]
  - Chromaturia [Recovered/Resolved]
  - Urine odour abnormal [Recovered/Resolved]
  - Drug ineffective [Not Recovered/Not Resolved]
